FAERS Safety Report 4757058-X (Version None)
Quarter: 2005Q3

REPORT INFORMATION
  Report Type: 
  Country: None (occurrence: None)
  Receive Date: 20050829
  Receipt Date: 20050829
  Transmission Date: 20060218
  Serious: Yes (Life-Threatening, Hospitalization, Disabling)
  Sender: FDA-Public Use
  Company Number: None

PATIENT
  Age: 22 Year
  Sex: Female
  Weight: 63.5036 kg

DRUGS (1)
  1. IBUPROFEN [Suspect]
     Indication: STEVENS-JOHNSON SYNDROME
     Dosage: I'M NOT SHURE IT WAS 19 YEARS AGO
     Dates: start: 19860901, end: 20050827

REACTIONS (1)
  - STEVENS-JOHNSON SYNDROME [None]
